FAERS Safety Report 10061642 (Version 1)
Quarter: 2014Q2

REPORT INFORMATION
  Report Type: Spontaneous
  Country: US (occurrence: None)
  Receive Date: 20140403
  Receipt Date: 20140403
  Transmission Date: 20141212
  Serious: Yes (Hospitalization)
  Sender: FDA-Public Use
  Company Number: SYM-2014-19278

PATIENT
  Sex: 0

DRUGS (5)
  1. FLUOROURACIL (FLUOROURACIL) (SOLUTION FOR INFUSION) (FLUOROURACIL) [Suspect]
     Indication: ADENOCARCINOMA PANCREAS
     Route: 042
  2. GEMCITABINE [Suspect]
     Indication: ADENOCARCINOMA PANCREAS
     Route: 040
  3. CETUXIMAB [Suspect]
     Indication: ADENOCARCINOMA PANCREAS
     Route: 040
  4. THERAPEUTIC RADIOPHARMACEUTICALS [Suspect]
     Indication: ADENOCARCINOMA PANCREAS
  5. DOXYCYCLINE (DOXYCYCLINE) [Concomitant]

REACTIONS (3)
  - Diarrhoea [None]
  - Electrolyte imbalance [None]
  - Arrhythmia [None]
